FAERS Safety Report 8731382 (Version 2)
Quarter: 2012Q4

REPORT INFORMATION
  Report Type: Spontaneous
  Country: US (occurrence: None)
  Receive Date: 20120801
  Receipt Date: 20120907
  Transmission Date: 20130627
  Serious: Yes (Other)
  Sender: FDA-Public Use
  Company Number: 201207061

PATIENT
  Sex: Male

DRUGS (1)
  1. XIAFLEX [Suspect]
     Indication: DUPUYTREN^S CONTRACTURE
     Dosage: intralesional
     Dates: start: 20120619, end: 20120619

REACTIONS (3)
  - SKIN GRAFT [None]
  - SKIN EXFOLIATION [None]
  - SKIN WOUND [None]
